FAERS Safety Report 5585225-4 (Version None)
Quarter: 2008Q1

REPORT INFORMATION
  Report Type: 
  Country: None (occurrence: None)
  Receive Date: 20080109
  Receipt Date: 20080104
  Transmission Date: 20080703
  Serious: Yes (Other)
  Sender: FDA-Public Use
  Company Number: HQ4374125SEP2002

PATIENT
  Sex: Female
  Weight: 61.29 kg

DRUGS (2)
  1. PREMARIN [Suspect]
     Indication: PREMENSTRUAL SYNDROME
     Dosage: ^3 WEEKS OF PREMARIN AND ONE WEEK PROVERA^
     Route: 048
     Dates: start: 19710101, end: 19790101
  2. MEDROXYPROGESTERONE ACETATE [Suspect]
     Dosage: UNSPECIFIED DOSAGE
     Dates: start: 19710101, end: 19790101

REACTIONS (10)
  - BRADYCARDIA [None]
  - BREAST CANCER FEMALE [None]
  - CONVULSION [None]
  - DRY EYE [None]
  - FIBROCYSTIC BREAST DISEASE [None]
  - MYOCARDIAL INFARCTION [None]
  - NEUROPATHY PERIPHERAL [None]
  - OSTEONECROSIS [None]
  - SYSTEMIC LUPUS ERYTHEMATOSUS [None]
  - TRANSIENT ISCHAEMIC ATTACK [None]
